FAERS Safety Report 18378901 (Version 1)
Quarter: 2020Q4

REPORT INFORMATION
  Report Type: Spontaneous
  Country: US (occurrence: US)
  Receive Date: 20201014
  Receipt Date: 20201014
  Transmission Date: 20210114
  Serious: No
  Sender: FDA-Public Use
  Company Number: US-BIOGEN-2020BI00919919

PATIENT
  Sex: Female

DRUGS (2)
  1. TECFIDERA [Suspect]
     Active Substance: DIMETHYL FUMARATE
     Indication: MULTIPLE SCLEROSIS
     Dosage: 120 MG CAPSULE BY MOUTH TWICE DAILY FOR A MONTH WITH SAMPLES PROVIDED PER MD/BIOGEN AND THEN WHEN...
     Route: 048
     Dates: start: 202007
  2. TECFIDERA [Suspect]
     Active Substance: DIMETHYL FUMARATE
     Route: 048
     Dates: start: 20200828

REACTIONS (6)
  - Chest pain [Unknown]
  - COVID-19 [Not Recovered/Not Resolved]
  - Rash macular [Unknown]
  - Flushing [Unknown]
  - Arthralgia [Unknown]
  - Product dose omission issue [Unknown]
